FAERS Safety Report 9882662 (Version 2)
Quarter: 2014Q2

REPORT INFORMATION
  Report Type: Spontaneous
  Country: DK (occurrence: DK)
  Receive Date: 20140207
  Receipt Date: 20140505
  Transmission Date: 20141212
  Serious: Yes (Hospitalization)
  Sender: FDA-Public Use
  Company Number: CHPA2014DK002197

PATIENT
  Sex: Male

DRUGS (1)
  1. NICOTINELL TTS 20 [Suspect]
     Dosage: 21 MG, UNK

REACTIONS (1)
  - Cardiac disorder [Unknown]
